FAERS Safety Report 8735015 (Version 2)
Quarter: 2012Q4

REPORT INFORMATION
  Report Type: Report from Study
  Country: CA (occurrence: CA)
  Receive Date: 20120821
  Receipt Date: 20121010
  Transmission Date: 20130627
  Serious: Yes (Other)
  Sender: FDA-Public Use
  Company Number: CA-ABBOTT-11P-028-0865935-00

PATIENT
  Age: 51 Year
  Sex: Female
  Weight: 59.02 kg

DRUGS (10)
  1. HUMIRA [Suspect]
     Indication: CROHN^S DISEASE
     Route: 058
     Dates: start: 20110811
  2. HUMIRA [Suspect]
     Route: 058
     Dates: start: 20120802
  3. HUMIRA [Suspect]
     Route: 058
     Dates: start: 20120809
  4. METHOTREXATE [Suspect]
     Indication: CROHN^S DISEASE
     Dates: start: 201201
  5. METHOTREXATE [Suspect]
     Dosage: weekly
     Route: 058
  6. FOLIC ACID [Concomitant]
     Indication: CROHN^S DISEASE
     Dosage: weekly
     Route: 048
  7. APO PANTOPRAZOLE [Concomitant]
     Indication: GASTROOESOPHAGEAL REFLUX DISEASE
     Route: 048
  8. CITALOPRAM [Concomitant]
     Indication: NERVOUSNESS
     Route: 048
  9. LOPERAMIDE SANDOZ [Concomitant]
     Indication: DIARRHOEA
     Route: 051
  10. CALCITE [Concomitant]
     Indication: MINERAL SUPPLEMENTATION

REACTIONS (5)
  - Gastrointestinal inflammation [Recovered/Resolved]
  - Gastrointestinal infection [Unknown]
  - Dehydration [Unknown]
  - Fatigue [Unknown]
  - Incorrect drug administration duration [Unknown]
